FAERS Safety Report 25416632 (Version 1)
Quarter: 2025Q2

REPORT INFORMATION
  Report Type: Spontaneous
  Country: US (occurrence: US)
  Receive Date: 20250610
  Receipt Date: 20250610
  Transmission Date: 20250716
  Serious: No
  Sender: TOLMAR
  Company Number: CID000000000000392

PATIENT
  Sex: Female

DRUGS (4)
  1. FENSOLVI [Suspect]
     Active Substance: LEUPROLIDE ACETATE
     Indication: Product used for unknown indication
     Dosage: EXPIRATION DATE: FEB-2026; JAN-2026; UNK
     Dates: start: 20250505
  2. FENSOLVI [Suspect]
     Active Substance: LEUPROLIDE ACETATE
  3. FENSOLVI [Suspect]
     Active Substance: LEUPROLIDE ACETATE
     Dates: start: 20240511
  4. DEVICE [Suspect]
     Active Substance: DEVICE
     Indication: Product used for unknown indication

REACTIONS (2)
  - Intercepted product preparation error [Unknown]
  - Product packaging quantity issue [Unknown]

NARRATIVE: CASE EVENT DATE: 20250505
